FAERS Safety Report 14944143 (Version 1)
Quarter: 2018Q2

REPORT INFORMATION
  Report Type: Spontaneous
  Country: US (occurrence: US)
  Receive Date: 20180528
  Receipt Date: 20180528
  Transmission Date: 20180711
  Serious: Yes (Other)
  Sender: FDA-Public Use
  Company Number: US-ELI_LILLY_AND_COMPANY-US201805009019

PATIENT
  Age: 25 Year
  Sex: Female

DRUGS (5)
  1. RISPERDAL [Suspect]
     Active Substance: RISPERIDONE
     Indication: DISSOCIATION
     Dosage: UNK UNK, UNKNOWN
     Route: 065
  2. LARIAM [Suspect]
     Active Substance: MEFLOQUINE HYDROCHLORIDE
     Indication: MALARIA PROPHYLAXIS
     Dosage: 250 MG, THREE TIMES TOTAL
     Route: 048
     Dates: start: 20000414, end: 20000428
  3. VALIUM [Suspect]
     Active Substance: DIAZEPAM
     Dosage: UNK
     Route: 065
  4. VALIUM [Suspect]
     Active Substance: DIAZEPAM
     Indication: DISSOCIATION
     Dosage: UNK UNK, UNKNOWN
     Route: 065
  5. ZYPREXA [Suspect]
     Active Substance: OLANZAPINE
     Indication: DISSOCIATION
     Dosage: UNK UNK, UNKNOWN
     Route: 065

REACTIONS (19)
  - Anxiety [Not Recovered/Not Resolved]
  - Hallucination, tactile [Unknown]
  - Psychotic disorder [Recovering/Resolving]
  - Crying [Unknown]
  - Abnormal dreams [Not Recovered/Not Resolved]
  - Tachyphrenia [Unknown]
  - Tremor [Recovering/Resolving]
  - Fatigue [Not Recovered/Not Resolved]
  - Hyperventilation [Unknown]
  - Confusional state [Not Recovered/Not Resolved]
  - Amnesia [Unknown]
  - Hallucination, visual [Not Recovered/Not Resolved]
  - Blood glucose increased [Unknown]
  - Depression [Not Recovered/Not Resolved]
  - Dissociation [Not Recovered/Not Resolved]
  - Hallucination, auditory [Not Recovered/Not Resolved]
  - Feeling abnormal [Unknown]
  - Suicidal ideation [Recovering/Resolving]
  - Jamais vu [Unknown]

NARRATIVE: CASE EVENT DATE: 20000414
